FAERS Safety Report 7196989-0 (Version None)
Quarter: 2010Q4

REPORT INFORMATION
  Report Type: 
  Country: None (occurrence: None)
  Receive Date: 20101224
  Receipt Date: 20101220
  Transmission Date: 20110411
  Serious: Yes (Other)
  Sender: FDA-Public Use
  Company Number: DE-AMGEN-DEUSP2010010952

PATIENT

DRUGS (6)
  1. ENBREL FERTIGSPRITZE [Suspect]
     Indication: RHEUMATOID ARTHRITIS
     Dosage: 50 MG, WEEKLY
     Dates: start: 20081101, end: 20100930
  2. ENBREL FERTIGSPRITZE [Suspect]
     Indication: PRODUCT USED FOR UNKNOWN INDICATION
  3. URBASON [Concomitant]
     Dosage: 4 MG, FREQUENCY UNKNOWN
  4. GODAMED [Concomitant]
     Dosage: UNK
  5. IBUPROFEN [Concomitant]
     Dosage: IF NEEDED
  6. HUMIRA [Concomitant]
     Dosage: UNK UNK, UNK
     Dates: start: 20100101

REACTIONS (1)
  - KNEE ARTHROPLASTY [None]
